FAERS Safety Report 8392056-9 (Version None)
Quarter: 2012Q2

REPORT INFORMATION
  Report Type: 
  Country: None (occurrence: None)
  Receive Date: 20120529
  Receipt Date: 20120523
  Transmission Date: 20120825
  Serious: Yes (Other)
  Sender: FDA-Public Use
  Company Number: FI-ROCHE-1072296

PATIENT
  Sex: Female

DRUGS (3)
  1. HERCEPTIN [Suspect]
     Indication: BREAST CANCER
     Route: 042
  2. XELODA [Suspect]
     Indication: BREAST CANCER
     Route: 048
  3. LAPATINIB [Suspect]
     Indication: BREAST CANCER
     Route: 042

REACTIONS (3)
  - METASTASES TO CENTRAL NERVOUS SYSTEM [None]
  - THERAPEUTIC RESPONSE DECREASED [None]
  - INFUSION RELATED REACTION [None]
